FAERS Safety Report 7475492-4 (Version None)
Quarter: 2011Q2

REPORT INFORMATION
  Report Type: 
  Country: None (occurrence: None)
  Receive Date: 20110512
  Receipt Date: 20110427
  Transmission Date: 20111010
  Serious: Yes (Hospitalization, Other)
  Sender: FDA-Public Use
  Company Number: PHHY2011IT14956

PATIENT
  Sex: Male

DRUGS (5)
  1. SANDOSTATIN [Suspect]
     Indication: VARICES OESOPHAGEAL
     Dosage: 1 DF, QMO
     Route: 058
     Dates: start: 20101115, end: 20110121
  2. LASIX [Suspect]
     Dosage: 25 MG, DAILY
     Route: 048
     Dates: start: 20101115, end: 20110121
  3. ALDACTONE [Concomitant]
  4. FOLINA [Concomitant]
     Dosage: 5 MG, UNK
     Route: 048
  5. PANTOPRAZOLE SODIUM [Suspect]
     Dosage: 40 MG, DAILY
     Route: 048
     Dates: start: 20101115, end: 20110121

REACTIONS (12)
  - ASTHENIA [None]
  - INTESTINAL FUNCTIONAL DISORDER [None]
  - HYPERGLYCAEMIA [None]
  - HEPATOBILIARY DISEASE [None]
  - ASPARTATE AMINOTRANSFERASE INCREASED [None]
  - ALANINE AMINOTRANSFERASE INCREASED [None]
  - NAUSEA [None]
  - GAMMA-GLUTAMYLTRANSFERASE INCREASED [None]
  - BLOOD BILIRUBIN INCREASED [None]
  - DYSPEPSIA [None]
  - VOMITING [None]
  - DIARRHOEA [None]
